FAERS Safety Report 19242718 (Version 1)
Quarter: 2021Q2

REPORT INFORMATION
  Report Type: Spontaneous
  Country: US (occurrence: US)
  Receive Date: 20210511
  Receipt Date: 20210511
  Transmission Date: 20210717
  Serious: Yes (Other)
  Sender: FDA-Public Use
  Company Number: None

PATIENT
  Sex: Male
  Weight: 78.3 kg

DRUGS (11)
  1. TAMSULOSIN 0.4MG CAP [Concomitant]
     Active Substance: TAMSULOSIN
  2. IPRATROPIUM/ALBUTEROL MININEB [Concomitant]
  3. SYMBICORT [Concomitant]
     Active Substance: BUDESONIDE\FORMOTEROL FUMARATE DIHYDRATE
  4. CALCIUM 500+D TAB [Concomitant]
  5. VENTOLIN HFA [Concomitant]
     Active Substance: ALBUTEROL SULFATE
  6. VITAMIN D3 [Concomitant]
     Active Substance: CHOLECALCIFEROL
  7. ERLEADA [Suspect]
     Active Substance: APALUTAMIDE
     Indication: PROSTATE CANCER
     Route: 048
     Dates: start: 20201215
  8. ATORVASTATIN 10MG TAB [Concomitant]
     Active Substance: ATORVASTATIN CALCIUM
  9. LUPRON DEPOT ? 1 MONTH [Concomitant]
  10. FINASTERIDE 1 MG TAB [Concomitant]
  11. MONTELUKAST 4 MG TAB [Concomitant]

REACTIONS (1)
  - Disease progression [None]
